FAERS Safety Report 24037166 (Version 1)
Quarter: 2024Q3

REPORT INFORMATION
  Report Type: Spontaneous
  Country: US (occurrence: US)
  Receive Date: 20240701
  Receipt Date: 20240701
  Transmission Date: 20241017
  Serious: Yes (Hospitalization, Other)
  Sender: CIPLA
  Company Number: US-CIPLA LTD.-2024US06607

PATIENT

DRUGS (1)
  1. BUPROPION [Suspect]
     Active Substance: BUPROPION
     Dosage: UNK
     Route: 065

REACTIONS (7)
  - Encephalopathy [Recovered/Resolved]
  - Conduction disorder [Recovered/Resolved]
  - Brain death [Recovered/Resolved]
  - Status epilepticus [Unknown]
  - Suicide attempt [Unknown]
  - Suicidal behaviour [Unknown]
  - Intentional overdose [Unknown]
